FAERS Safety Report 25995024 (Version 1)
Quarter: 2025Q4

REPORT INFORMATION
  Report Type: Spontaneous
  Country: US (occurrence: US)
  Receive Date: 20251104
  Receipt Date: 20251104
  Transmission Date: 20260117
  Serious: No
  Sender: APPCO PHARMA LLC
  Company Number: US-Appco Pharma LLC-2187849

PATIENT
  Sex: Female

DRUGS (1)
  1. MODAFINIL [Suspect]
     Active Substance: MODAFINIL
     Indication: Product used for unknown indication

REACTIONS (1)
  - Drug ineffective [Unknown]
